FAERS Safety Report 6710696-7 (Version None)
Quarter: 2010Q2

REPORT INFORMATION
  Report Type: 
  Country: None (occurrence: None)
  Receive Date: 20100504
  Receipt Date: 20100504
  Transmission Date: 20101027
  Serious: No
  Sender: FDA-Public Use
  Company Number: None

PATIENT
  Age: 3 Year
  Sex: Female
  Weight: 15.4223 kg

DRUGS (2)
  1. CHILDREN'S TYLENOL 5ML FOR 1 TSP MCNEIL PPC INC [Suspect]
     Indication: ABDOMINAL PAIN
     Dosage: 1 TSP OR 5ML Q 4HRS PO
     Route: 048
     Dates: start: 20060425, end: 20060428
  2. CHILDREN'S TYLENOL 5ML FOR 1 TSP MCNEIL PPC INC [Suspect]
     Indication: PYREXIA
     Dosage: 1 TSP OR 5ML Q 4HRS PO
     Route: 048
     Dates: start: 20060425, end: 20060428

REACTIONS (4)
  - ABDOMINAL PAIN [None]
  - DIARRHOEA [None]
  - PRODUCT QUALITY ISSUE [None]
  - VOMITING [None]
